FAERS Safety Report 21364086 (Version 2)
Quarter: 2022Q3

REPORT INFORMATION
  Report Type: Spontaneous
  Country: ZA (occurrence: None)
  Receive Date: 20220922
  Receipt Date: 20220927
  Transmission Date: 20221027
  Serious: Yes (Other)
  Sender: FDA-Public Use
  Company Number: ZA-ROCHE-3183301

PATIENT
  Sex: Male

DRUGS (1)
  1. ACTEMRA [Suspect]
     Active Substance: TOCILIZUMAB
     Indication: Product used for unknown indication
     Route: 065

REACTIONS (7)
  - Pain [Unknown]
  - Erythema [Unknown]
  - Confusional state [Unknown]
  - Movement disorder [Unknown]
  - Syncope [Unknown]
  - Drug ineffective [Unknown]
  - Joint swelling [Unknown]
